FAERS Safety Report 21064666 (Version 1)
Quarter: 2022Q3

REPORT INFORMATION
  Report Type: Spontaneous
  Country: US (occurrence: None)
  Receive Date: 20220710
  Receipt Date: 20220710
  Transmission Date: 20221027
  Serious: Yes (Other)
  Sender: FDA-Public Use
  Company Number: None

PATIENT
  Age: 57 Year
  Sex: Female
  Weight: 131.85 kg

DRUGS (1)
  1. CLOTRIMAZOLE AND BETAMETHASONE DIPROPIONATE [Suspect]
     Active Substance: BETAMETHASONE\BETAMETHASONE DIPROPIONATE\CLOTRIMAZOLE
     Dosage: FREQUENCY : EVERY 12 HOURS;?
     Route: 061
     Dates: start: 20220707, end: 20220709

REACTIONS (6)
  - Dizziness postural [None]
  - Blood pressure decreased [None]
  - Vertigo [None]
  - Visual impairment [None]
  - Feeling abnormal [None]
  - Drug hypersensitivity [None]

NARRATIVE: CASE EVENT DATE: 20220707
